FAERS Safety Report 12431531 (Version 1)
Quarter: 2016Q2

REPORT INFORMATION
  Report Type: Spontaneous
  Country: US (occurrence: None)
  Receive Date: 20160602
  Receipt Date: 20160602
  Transmission Date: 20160815
  Serious: No
  Sender: FDA-Public Use
  Company Number: None

PATIENT
  Age: 79 Year
  Sex: Female
  Weight: 48.1 kg

DRUGS (5)
  1. PREDNISONE. [Suspect]
     Active Substance: PREDNISONE
     Dates: end: 20160519
  2. CYCLOPHOSPHAMIDE. [Suspect]
     Active Substance: CYCLOPHOSPHAMIDE
     Dates: end: 20160519
  3. RITUXIMAB (MOAB C2B8 ANTI CD20, CHIMERIC) [Suspect]
     Active Substance: RITUXIMAB
     Dates: end: 20160519
  4. VINCRISTINE SULFATE. [Suspect]
     Active Substance: VINCRISTINE SULFATE
     Dates: end: 20160519
  5. DOXORUBICIN HYDROCHLORIDE. [Suspect]
     Active Substance: DOXORUBICIN HYDROCHLORIDE
     Dates: end: 20160519

REACTIONS (1)
  - Platelet count decreased [None]

NARRATIVE: CASE EVENT DATE: 20160527
